FAERS Safety Report 6138087-0 (Version None)
Quarter: 2009Q1

REPORT INFORMATION
  Report Type: 
  Country: None (occurrence: None)
  Receive Date: 20090331
  Receipt Date: 20090324
  Transmission Date: 20090719
  Serious: Yes (Other)
  Sender: FDA-Public Use
  Company Number: US-AVENTIS-200911956US

PATIENT
  Sex: Female
  Weight: 64.4 kg

DRUGS (5)
  1. LOVENOX [Suspect]
  2. AMLODIPINE BESYLATE [Concomitant]
  3. ALPRAZOLAM [Concomitant]
  4. SIMVASTATIN [Concomitant]
  5. EFFEXOR XR [Concomitant]

REACTIONS (3)
  - CATHETER THROMBOSIS [None]
  - DRUG INEFFECTIVE [None]
  - NEOPLASM MALIGNANT [None]
